FAERS Safety Report 5211569-1 (Version None)
Quarter: 2007Q1

REPORT INFORMATION
  Report Type: 
  Country: None (occurrence: None)
  Receive Date: 20070117
  Receipt Date: 20070117
  Transmission Date: 20070707
  Serious: Yes (Disabling)
  Sender: FDA-Public Use
  Company Number: None

PATIENT
  Sex: Female
  Weight: 46.7205 kg

DRUGS (2)
  1. MEFLOQUINE [Suspect]
     Indication: MALARIA PROPHYLAXIS
     Dosage: 250 MG PO QWK PO
     Route: 048
     Dates: start: 19990101, end: 20030101
  2. ERYTHROMYCIN [Concomitant]

REACTIONS (5)
  - COLOUR BLINDNESS [None]
  - MACULOPATHY [None]
  - NIGHT BLINDNESS [None]
  - SCOTOMA [None]
  - VISUAL ACUITY REDUCED [None]
